FAERS Safety Report 20784490 (Version 1)
Quarter: 2022Q2

REPORT INFORMATION
  Report Type: Spontaneous
  Country: FR (occurrence: FR)
  Receive Date: 20220504
  Receipt Date: 20220504
  Transmission Date: 20220720
  Serious: Yes (Hospitalization)
  Sender: FDA-Public Use
  Company Number: None

PATIENT
  Age: 60 Year
  Sex: Female

DRUGS (2)
  1. CYCLOSPORINE [Suspect]
     Active Substance: CYCLOSPORINE
     Indication: Myelodysplastic syndrome
     Dosage: UNK
     Route: 048
     Dates: start: 202112
  2. ELTROMBOPAG OLAMINE [Suspect]
     Active Substance: ELTROMBOPAG OLAMINE
     Indication: Myelodysplastic syndrome
     Dosage: UNK
     Route: 048
     Dates: start: 20211007, end: 20211110

REACTIONS (2)
  - Pachymeningitis [Not Recovered/Not Resolved]
  - Systemic inflammatory response syndrome [Not Recovered/Not Resolved]

NARRATIVE: CASE EVENT DATE: 20220124
